FAERS Safety Report 17934485 (Version 1)
Quarter: 2020Q2

REPORT INFORMATION
  Report Type: Report from Study
  Country: None (occurrence: US)
  Receive Date: 20200624
  Receipt Date: 20200624
  Transmission Date: 20200714
  Serious: Yes (Hospitalization)
  Sender: FDA-Public Use
  Company Number: US-BIOVITRUM-2020US2349

PATIENT
  Age: 23 Year
  Sex: Female

DRUGS (1)
  1. KINERET [Suspect]
     Active Substance: ANAKINRA
     Indication: GRANULOMATOSIS WITH POLYANGIITIS
     Route: 058
     Dates: start: 20200421

REACTIONS (2)
  - Liver disorder [Unknown]
  - Off label use [Unknown]

NARRATIVE: CASE EVENT DATE: 20200421
